FAERS Safety Report 7479654 (Version 6)
Quarter: 2012Q4

REPORT INFORMATION
  Report Type: Report from Study
  Country: JP (occurrence: JP)
  Receive Date: 20100716
  Receipt Date: 20120831
  Transmission Date: 20130627
  Serious: Yes (Hospitalization, Other)
  Sender: FDA-Public Use
  Company Number: JP-ROCHE-714781

PATIENT
  Age: 63 Year
  Sex: Female
  Weight: 59 kg

DRUGS (17)
  1. ROACTEMRA [Suspect]
     Indication: RHEUMATOID ARTHRITIS
     Route: 041
     Dates: start: 20090116, end: 20090116
  2. ROACTEMRA [Suspect]
     Route: 041
     Dates: start: 20090220, end: 20090220
  3. ROACTEMRA [Suspect]
     Route: 041
     Dates: start: 20090327, end: 20090327
  4. ROACTEMRA [Suspect]
     Route: 041
     Dates: start: 20090422, end: 20090422
  5. ROACTEMRA [Suspect]
     Route: 041
     Dates: start: 20090527, end: 20090527
  6. ROACTEMRA [Suspect]
     Route: 041
     Dates: start: 20090624, end: 20090624
  7. ROACTEMRA [Suspect]
     Route: 041
     Dates: start: 20090722, end: 20100514
  8. METHOTREXATE SODIUM [Suspect]
     Indication: RHEUMATOID ARTHRITIS
     Dosage: RHEUMATREX
     Route: 048
  9. METHOTREXATE SODIUM [Suspect]
     Route: 048
  10. PROGRAF [Concomitant]
     Route: 048
     Dates: start: 20080509, end: 20100521
  11. FOLIAMIN [Concomitant]
     Route: 048
     Dates: start: 20071128, end: 20100514
  12. MYSLEE [Concomitant]
     Route: 048
  13. LOXONIN [Concomitant]
     Route: 048
     Dates: start: 20071102, end: 20110406
  14. ULGUT [Concomitant]
     Route: 048
  15. GLAKAY [Concomitant]
     Route: 048
  16. ALESION [Concomitant]
     Route: 048
     Dates: start: 20090527, end: 20100521
  17. URSO [Concomitant]
     Route: 048
     Dates: start: 20090624, end: 20110406

REACTIONS (5)
  - Hepatic function abnormal [Recovering/Resolving]
  - Interstitial lung disease [Not Recovered/Not Resolved]
  - Dizziness [Unknown]
  - Pruritus [Recovered/Resolved]
  - Diabetes mellitus [Unknown]
